FAERS Safety Report 9746392 (Version 1)
Quarter: 2013Q4

REPORT INFORMATION
  Report Type: Spontaneous
  Country: US (occurrence: US)
  Receive Date: 20131211
  Receipt Date: 20131211
  Transmission Date: 20140711
  Serious: Yes (Other)
  Sender: FDA-Public Use
  Company Number: US-GLAXOSMITHKLINE-A1053090A

PATIENT
  Age: 47 Year
  Sex: Male

DRUGS (1)
  1. VOTRIENT [Suspect]
     Indication: RENAL CANCER
     Dosage: 800MG PER DAY
     Route: 065

REACTIONS (6)
  - Erythema induratum [Unknown]
  - Drug ineffective [Unknown]
  - Fluid retention [Unknown]
  - Rash papular [Unknown]
  - Adverse drug reaction [Unknown]
  - Blister [Unknown]
